FAERS Safety Report 9217311 (Version 1)
Quarter: 2013Q2

REPORT INFORMATION
  Report Type: Spontaneous
  Country: US (occurrence: US)
  Receive Date: 20130408
  Receipt Date: 20130408
  Transmission Date: 20140414
  Serious: No
  Sender: FDA-Public Use
  Company Number: US-PFIZER INC-2013110818

PATIENT
  Age: 44 Year
  Sex: Female
  Weight: 45.35 kg

DRUGS (10)
  1. CHANTIX [Suspect]
     Indication: SMOKING CESSATION THERAPY
     Dosage: 0.5 MG, 1X/DAY
     Dates: start: 20130406
  2. MORPHINE [Concomitant]
     Indication: PAIN
     Dosage: 60 MG, 1X/DAY
  3. OXYCODONE [Concomitant]
     Indication: PAIN
     Dosage: 30 MG, 4X/DAY
  4. SOMA [Concomitant]
     Indication: PAIN
     Dosage: 350 MG, 3X/DAY
  5. IBUPROFEN [Concomitant]
     Indication: PAIN
     Dosage: 800 MG, EVERY 8 HOURS
  6. TRICOR [Concomitant]
     Indication: BLOOD CHOLESTEROL ABNORMAL
     Dosage: 145 MG, 1X/DAY
  7. ZOLOFT [Concomitant]
     Indication: GENERAL PHYSICAL HEALTH DETERIORATION
     Dosage: 100 MG, 1X/DAY
  8. LASIX [Concomitant]
     Indication: CARDIAC DISORDER
     Dosage: 80 MG, 2X/DAY
  9. DEPAKOTE [Concomitant]
     Indication: CONVULSION
     Dosage: 250 MG, 3X/DAY
  10. XANAX [Concomitant]
     Indication: STRESS
     Dosage: 2 MG, 3X/DAY

REACTIONS (1)
  - Oral herpes [Not Recovered/Not Resolved]
